FAERS Safety Report 5692480-9 (Version None)
Quarter: 2008Q2

REPORT INFORMATION
  Report Type: 
  Country: None (occurrence: None)
  Receive Date: 20080402
  Receipt Date: 20080326
  Transmission Date: 20081010
  Serious: Yes (Other)
  Sender: FDA-Public Use
  Company Number: JP-ASTRAZENECA-2008AP02185

PATIENT
  Age: 72 Year
  Sex: Female

DRUGS (4)
  1. CRESTOR [Suspect]
     Indication: LIPIDS ABNORMAL
     Route: 048
     Dates: start: 20080319, end: 20080320
  2. CELECOX [Interacting]
     Indication: OSTEOARTHRITIS
     Dosage: FREQUENCY UNKNOWN
     Route: 048
     Dates: start: 20080206, end: 20080320
  3. FOIPAN [Suspect]
     Indication: PANCREATITIS CHRONIC
     Dosage: FREQUENCY UNKNOWN
     Route: 048
     Dates: start: 20080319, end: 20080320
  4. ALLOZYM [Suspect]
     Indication: HYPERURICAEMIA
     Dosage: FREQUENCY UNKNOWN
     Route: 048
     Dates: start: 20080319, end: 20080320

REACTIONS (3)
  - ERYTHEMA [None]
  - OEDEMA [None]
  - PRURITUS [None]
